FAERS Safety Report 10209930 (Version 1)
Quarter: 2014Q2

REPORT INFORMATION
  Report Type: Spontaneous
  Country: US (occurrence: US)
  Receive Date: 20140602
  Receipt Date: 20140602
  Transmission Date: 20141212
  Serious: Yes (Other)
  Sender: FDA-Public Use
  Company Number: US-AMGEN INC.-USASP2014040414

PATIENT
  Sex: Male

DRUGS (1)
  1. ENBREL [Suspect]
     Indication: RHEUMATOID ARTHRITIS
     Dosage: UNK
     Route: 065

REACTIONS (6)
  - Joint swelling [Unknown]
  - Pneumonia [Recovered/Resolved]
  - Therapeutic response decreased [Unknown]
  - Mobility decreased [Unknown]
  - Pain [Unknown]
  - Upper respiratory tract infection [Recovered/Resolved]
